FAERS Safety Report 16770035 (Version 1)
Quarter: 2019Q3

REPORT INFORMATION
  Report Type: Spontaneous
  Country: DK (occurrence: DK)
  Receive Date: 20190904
  Receipt Date: 20190904
  Transmission Date: 20191005
  Serious: Yes (Other)
  Sender: FDA-Public Use
  Company Number: DK-BRISTOL-MYERS SQUIBB COMPANY-BMS-2019-066549

PATIENT
  Age: 72 Year
  Sex: Female
  Weight: 47.5 kg

DRUGS (2)
  1. ELIQUIS [Suspect]
     Active Substance: APIXABAN
     Indication: THROMBOSIS PROPHYLAXIS
     Dosage: 5 MILLIGRAM, DAILY (UNKNOWN FREQEUNCY)
     Route: 048
     Dates: start: 20190521
  2. CLOPIDOGREL KRKA [CLOPIDOGREL BISULFATE] [Concomitant]
     Indication: THROMBOSIS PROPHYLAXIS
     Dosage: 75 MILLIGRAM, DAILY (FREQUENCY UNKNOWN)
     Route: 048
     Dates: start: 20190427

REACTIONS (6)
  - Abdominal pain [Unknown]
  - Restlessness [Unknown]
  - Rectal haemorrhage [Unknown]
  - Nausea [Unknown]
  - Intentional product use issue [Unknown]
  - Malaise [Unknown]

NARRATIVE: CASE EVENT DATE: 20190627
